FAERS Safety Report 8489919-2 (Version None)
Quarter: 2012Q3

REPORT INFORMATION
  Report Type: 
  Country: None (occurrence: None)
  Receive Date: 20120705
  Receipt Date: 20120626
  Transmission Date: 20120928
  Serious: Yes (Other)
  Sender: FDA-Public Use
  Company Number: JP-VERTEX PHARMACEUTICALS INC.-AE-2012-009747

PATIENT
  Age: 67 Year
  Sex: Female

DRUGS (14)
  1. TELAVIC (TELAPREVIR) [Suspect]
     Indication: HEPATITIS C
     Route: 048
     Dates: start: 20120412, end: 20120416
  2. ISOSORBIDE MONONITRATE [Concomitant]
     Route: 048
  3. ADJUST A [Concomitant]
     Route: 048
  4. RIBAVIRIN [Concomitant]
     Indication: HEPATITIS C
     Route: 048
     Dates: start: 20120412, end: 20120501
  5. PEGINTERFERON ALFA-2B [Concomitant]
     Indication: HEPATITIS C
     Route: 058
     Dates: start: 20120412, end: 20120502
  6. URSO 250 [Concomitant]
     Route: 048
  7. ENALAPRIL MALEATE [Concomitant]
     Route: 048
  8. ROXATIDINE ACETATE HCL [Concomitant]
     Route: 048
  9. TELAVIC (TELAPREVIR) [Suspect]
     Route: 048
     Dates: start: 20120420, end: 20120507
  10. NITROGLYCERIN [Concomitant]
     Route: 051
  11. RIBAVIRIN [Concomitant]
     Route: 048
     Dates: start: 20120502, end: 20120507
  12. DETANTOL [Concomitant]
     Route: 051
  13. NESINA [Concomitant]
     Route: 048
  14. HERBESSER R CAPSULES [Concomitant]
     Route: 048

REACTIONS (2)
  - RENAL IMPAIRMENT [None]
  - ANAEMIA [None]
